FAERS Safety Report 24807800 (Version 1)
Quarter: 2025Q1

REPORT INFORMATION
  Report Type: Spontaneous
  Country: US (occurrence: US)
  Receive Date: 20250106
  Receipt Date: 20250106
  Transmission Date: 20250409
  Serious: No
  Sender: ROCHE
  Company Number: US-ROCHE-10000171279

PATIENT
  Age: 79 Year
  Sex: Female
  Weight: 72.6 kg

DRUGS (25)
  1. CELLCEPT [Suspect]
     Active Substance: MYCOPHENOLATE MOFETIL
     Indication: Product used for unknown indication
     Route: 048
  2. TREPROSTINIL [Suspect]
     Active Substance: TREPROSTINIL
     Indication: Pulmonary arterial hypertension
     Dosage: INHALATION POWDER
     Route: 055
  3. TREPROSTINIL [Suspect]
     Active Substance: TREPROSTINIL
     Route: 055
     Dates: start: 20220908
  4. TREPROSTINIL SODIUM [Suspect]
     Active Substance: TREPROSTINIL SODIUM
     Indication: Pulmonary arterial hypertension
     Route: 055
  5. ADEMPAS [Concomitant]
     Active Substance: RIOCIGUAT
  6. VITAMIN C [Concomitant]
     Active Substance: ASCORBIC ACID
  7. Voltaren arthritis pain (Diclofenac sodium) [Concomitant]
  8. Bactrim ds (Sulfamethoxazole, Trimethoprim) [Concomitant]
  9. LEVOTHYROXINE SODIUM [Concomitant]
     Active Substance: LEVOTHYROXINE SODIUM
  10. Ketotifen fumarate (Ketotifen fumarate) [Concomitant]
  11. Allegra allergy (Fexofenadine hydrochloride) [Concomitant]
  12. Trelegy ellipta (Fluticasone Furoate, Umeclidinium bromide, Vilanterol [Concomitant]
  13. Systane (Macrogol 400, Propylene glycol) [Concomitant]
  14. LASIX [Concomitant]
     Active Substance: FUROSEMIDE
  15. Sertraline HCL (Sertraline hydrochloride) [Concomitant]
  16. ALBUTEROL SULFATE [Concomitant]
     Active Substance: ALBUTEROL SULFATE
  17. ERYTHROMYCIN [Concomitant]
     Active Substance: ERYTHROMYCIN
  18. SIMVASTATIN [Concomitant]
     Active Substance: SIMVASTATIN
  19. Blink gel tears (Macrogol 400) [Concomitant]
  20. GABAPENTIN [Concomitant]
     Active Substance: GABAPENTIN
  21. Cetirizine HCL (Cetirizine hydrochloride) [Concomitant]
  22. Moderna COVID-19 vaccine (Elasomeran) [Concomitant]
  23. OXYGEN [Concomitant]
     Active Substance: OXYGEN
  24. AZITHROMYCIN ANHYDROUS [Concomitant]
     Active Substance: AZITHROMYCIN ANHYDROUS
  25. Levalbuterol (Levosalbutamol hydrochloride) Concentrate [Concomitant]

REACTIONS (1)
  - Nausea [Unknown]
